FAERS Safety Report 10028139 (Version 2)
Quarter: 2014Q1

REPORT INFORMATION
  Report Type: Spontaneous
  Country: FR (occurrence: FR)
  Receive Date: 20140321
  Receipt Date: 20140331
  Transmission Date: 20141002
  Serious: Yes (Hospitalization)
  Sender: FDA-Public Use
  Company Number: FR-SA-2014SA030814

PATIENT
  Age: 91 Year
  Sex: Male

DRUGS (10)
  1. SIMVASTATIN [Suspect]
     Indication: PROPHYLAXIS
     Route: 048
  2. LASILIX [Suspect]
     Dosage: 40 MG 1.5 TABLET IN THE MORNING.
     Route: 048
     Dates: end: 201402
  3. ACETYLSALICYLATE LYSINE [Suspect]
     Indication: PROPHYLAXIS
     Route: 048
  4. CAPTOPRIL [Suspect]
     Indication: PROPHYLAXIS
     Route: 048
     Dates: end: 201402
  5. METFORMIN HYDROCHLORIDE [Suspect]
     Indication: DIABETES MELLITUS
     Route: 048
     Dates: start: 2008, end: 20140210
  6. AERIUS [Suspect]
     Route: 048
     Dates: end: 201402
  7. DEDROGYL [Suspect]
     Dosage: 15 MG/100ML, 5 DROPS 1 IN 1 DAY
     Route: 048
     Dates: end: 201402
  8. ALL OTHER THERAPEUTIC PRODUCTS [Suspect]
     Dosage: 2DF
     Route: 060
     Dates: end: 201402
  9. CARDENSIEL [Suspect]
     Indication: PROPHYLAXIS
     Route: 048
  10. EUPANTOL [Suspect]
     Route: 048
     Dates: end: 20140212

REACTIONS (6)
  - Diarrhoea [Recovered/Resolved]
  - Abdominal pain [Recovered/Resolved]
  - Middle insomnia [Recovered/Resolved]
  - Urge incontinence [Recovered/Resolved]
  - Colitis microscopic [Unknown]
  - Weight decreased [Unknown]
